FAERS Safety Report 4835689-6 (Version None)
Quarter: 2005Q4

REPORT INFORMATION
  Report Type: 
  Country: None (occurrence: None)
  Receive Date: 20051123
  Receipt Date: 20050719
  Transmission Date: 20060501
  Serious: No
  Sender: FDA-Public Use
  Company Number: US-BRISTOL-MYERS SQUIBB COMPANY-13043872

PATIENT
  Sex: Female

DRUGS (2)
  1. PROLIXIN [Suspect]
     Route: 030
     Dates: start: 20050330
  2. LITHIUM [Concomitant]

REACTIONS (13)
  - ABDOMINAL DISTENSION [None]
  - ALOPECIA [None]
  - ASTHENIA [None]
  - BLOOD GLUCOSE INCREASED [None]
  - DIARRHOEA [None]
  - DROOLING [None]
  - DYSPNOEA [None]
  - GAIT DISTURBANCE [None]
  - INSOMNIA [None]
  - MENTAL IMPAIRMENT [None]
  - POLLAKIURIA [None]
  - SOMNOLENCE [None]
  - TREMOR [None]
